FAERS Safety Report 21341287 (Version 1)
Quarter: 2022Q3

REPORT INFORMATION
  Report Type: Other
  Country: DE (occurrence: None)
  Receive Date: 20220916
  Receipt Date: 20220916
  Transmission Date: 20221026
  Serious: Yes (Other)
  Sender: FDA-Public Use
  Company Number: DE-ROCHE-2380148

PATIENT
  Age: 48 Year
  Sex: Female

DRUGS (7)
  1. OCREVUS [Suspect]
     Active Substance: OCRELIZUMAB
     Indication: Relapsing-remitting multiple sclerosis
     Dosage: SUBSEQUENT DOSE ON 19/JUL/2019?300 MG IN 2 WEEKS AND IN 600 MG IN 6 MONTHS
     Route: 042
     Dates: start: 20190705, end: 20220112
  2. OCREVUS [Suspect]
     Active Substance: OCRELIZUMAB
     Dosage: MAINITAINANCE DOSE
     Route: 042
     Dates: start: 20200115
  3. OCREVUS [Suspect]
     Active Substance: OCRELIZUMAB
     Route: 042
     Dates: start: 20200715
  4. OCREVUS [Suspect]
     Active Substance: OCRELIZUMAB
     Route: 042
     Dates: start: 20210113
  5. PRIDINOL MESILATE [Concomitant]
     Active Substance: PRIDINOL MESILATE
     Dates: end: 202012
  6. BACLOFEN [Concomitant]
     Active Substance: BACLOFEN
     Dates: start: 202012
  7. CORTISONE [Concomitant]
     Active Substance: CORTISONE

REACTIONS (11)
  - Pneumonia [Recovered/Resolved]
  - Fatigue [Recovered/Resolved]
  - Gastrointestinal infection [Recovered/Resolved]
  - Arthropod sting [Recovered/Resolved]
  - Muscle tightness [Recovered/Resolved]
  - Fatigue [Recovered/Resolved]
  - Tendon rupture [Recovered/Resolved]
  - Inflammation [Recovered/Resolved]
  - Neck pain [Recovered/Resolved]
  - Iritis [Recovered/Resolved]
  - Hypoaesthesia [Recovered/Resolved]

NARRATIVE: CASE EVENT DATE: 20190706
